FAERS Safety Report 13406750 (Version 1)
Quarter: 2017Q2

REPORT INFORMATION
  Report Type: Spontaneous
  Country: US (occurrence: US)
  Receive Date: 20170405
  Receipt Date: 20170405
  Transmission Date: 20170830
  Serious: No
  Sender: FDA-Public Use
  Company Number: US-ASTRAZENECA-2017SE32648

PATIENT
  Sex: Male

DRUGS (3)
  1. XOPENEX [Concomitant]
     Active Substance: LEVALBUTEROL HYDROCHLORIDE
     Indication: ASTHMA
     Dosage: UNKNOWN
     Route: 055
  2. INTUNIV [Concomitant]
     Active Substance: GUANFACINE HYDROCHLORIDE
     Indication: ATTENTION DEFICIT/HYPERACTIVITY DISORDER
     Route: 046
     Dates: start: 2015
  3. PULMICORT RESPULES [Suspect]
     Active Substance: BUDESONIDE
     Indication: ASTHMA
     Route: 055

REACTIONS (8)
  - Dyspnoea [Unknown]
  - Off label use [Unknown]
  - Sinus congestion [Unknown]
  - Seasonal allergy [Unknown]
  - Hypersensitivity [Unknown]
  - Eye pruritus [Unknown]
  - Oropharyngeal pain [Unknown]
  - Product use issue [Unknown]
